FAERS Safety Report 7409008-5 (Version None)
Quarter: 2011Q2

REPORT INFORMATION
  Report Type: 
  Country: None (occurrence: None)
  Receive Date: 20110407
  Receipt Date: 20110407
  Transmission Date: 20111010
  Serious: No
  Sender: FDA-Public Use
  Company Number: None

PATIENT
  Age: 61 Year
  Sex: Female
  Weight: 90.7194 kg

DRUGS (1)
  1. GASTROGRAFIN [Suspect]
     Indication: X-RAY
     Dosage: 20ML ONCE OTHER
     Dates: start: 20110315, end: 20110402

REACTIONS (2)
  - PRODUCT QUALITY ISSUE [None]
  - PRODUCT ODOUR ABNORMAL [None]
